FAERS Safety Report 12146557 (Version 1)
Quarter: 2016Q1

REPORT INFORMATION
  Report Type: Spontaneous
  Country: US (occurrence: US)
  Receive Date: 20160304
  Receipt Date: 20160304
  Transmission Date: 20160526
  Serious: Yes (Death)
  Sender: FDA-Public Use
  Company Number: US-INDIVIOR-INDV-083634-2015

PATIENT
  Age: 19 Year
  Sex: Male

DRUGS (1)
  1. BUPRENORPHINE. [Suspect]
     Active Substance: BUPRENORPHINE
     Indication: PRODUCT USED FOR UNKNOWN INDICATION
     Dosage: UNK
     Route: 051
     Dates: start: 2014

REACTIONS (3)
  - Intentional product use issue [Recovered/Resolved]
  - Substance abuse [Recovered/Resolved]
  - Toxicity to various agents [Fatal]

NARRATIVE: CASE EVENT DATE: 2014
